FAERS Safety Report 24677613 (Version 1)
Quarter: 2024Q4

REPORT INFORMATION
  Report Type: Spontaneous
  Country: US (occurrence: US)
  Receive Date: 20241129
  Receipt Date: 20241129
  Transmission Date: 20250115
  Serious: No
  Sender: UCB
  Company Number: US-UCBSA-2024036921

PATIENT
  Sex: Female

DRUGS (1)
  1. ZILBRYSQ [Suspect]
     Active Substance: ZILUCOPLAN
     Indication: Myasthenia gravis
     Dosage: UNK
     Dates: start: 202406, end: 20240715

REACTIONS (3)
  - Adverse drug reaction [Recovered/Resolved]
  - Injection site pain [Unknown]
  - Increased tendency to bruise [Unknown]
